FAERS Safety Report 7104872-1 (Version None)
Quarter: 2010Q4

REPORT INFORMATION
  Report Type: 
  Country: None (occurrence: None)
  Receive Date: 20101116
  Receipt Date: 20101111
  Transmission Date: 20110411
  Serious: Yes (Death, Hospitalization)
  Sender: FDA-Public Use
  Company Number: GB-BRISTOL-MYERS SQUIBB COMPANY-15382567

PATIENT
  Age: 40 Year
  Sex: Male
  Weight: 152 kg

DRUGS (4)
  1. ABILIFY [Suspect]
     Indication: SCHIZOPHRENIA
     Route: 048
     Dates: start: 20050101, end: 20090901
  2. FLUPENTHIXOL [Suspect]
     Indication: SCHIZOPHRENIA
     Route: 048
     Dates: start: 20050101, end: 20090901
  3. FLUPENTHIXOL DECANOATE [Suspect]
     Indication: SCHIZOPHRENIA
     Route: 030
     Dates: start: 20050101, end: 20090901
  4. PROCYCLIDINE HCL [Concomitant]

REACTIONS (7)
  - BRONCHOPNEUMONIA [None]
  - CHEST PAIN [None]
  - CONGESTIVE CARDIOMYOPATHY [None]
  - DYSPNOEA [None]
  - PULMONARY EMBOLISM [None]
  - RENAL FAILURE [None]
  - RESPIRATORY DISTRESS [None]
